FAERS Safety Report 8268709-X (Version None)
Quarter: 2012Q2

REPORT INFORMATION
  Report Type: 
  Country: None (occurrence: None)
  Receive Date: 20120409
  Receipt Date: 20120403
  Transmission Date: 20120825
  Serious: Yes (Hospitalization, Other)
  Sender: FDA-Public Use
  Company Number: JP-FRI-1000013409

PATIENT
  Sex: Female

DRUGS (4)
  1. ZOPICLONE [Suspect]
     Indication: INSOMNIA
     Dosage: 7.5 MG
     Route: 048
     Dates: start: 20070920, end: 20100408
  2. MILNACIPRAN [Suspect]
     Indication: DEPRESSION
     Dosage: 50 MG
     Route: 048
     Dates: start: 20080920, end: 20100331
  3. L-CYSTEINE HCL 8.8% [Suspect]
     Indication: PRODUCTIVE COUGH
     Dosage: 200 MG
     Route: 048
     Dates: start: 20070920, end: 20100408
  4. MILNACIPRAN [Suspect]
     Dosage: 30 MG
     Route: 048
     Dates: start: 20100401

REACTIONS (3)
  - CONSTIPATION [None]
  - SHOCK [None]
  - ABDOMINAL PAIN UPPER [None]
